FAERS Safety Report 20952784 (Version 1)
Quarter: 2022Q2

REPORT INFORMATION
  Report Type: Spontaneous
  Country: US (occurrence: US)
  Receive Date: 20220613
  Receipt Date: 20220613
  Transmission Date: 20220721
  Serious: Yes (Other)
  Sender: FDA-Public Use
  Company Number: US-ANIPHARMA-2022-US-014014

PATIENT
  Age: 63 Year
  Sex: Female

DRUGS (2)
  1. ANASTROZOLE [Suspect]
     Active Substance: ANASTROZOLE
     Indication: Product used for unknown indication
     Route: 065
     Dates: start: 2011
  2. PROLIA [Suspect]
     Active Substance: DENOSUMAB
     Route: 065

REACTIONS (2)
  - Osteonecrosis of jaw [Unknown]
  - Osteoporosis [Unknown]
